FAERS Safety Report 6795549-0 (Version None)
Quarter: 2010Q2

REPORT INFORMATION
  Report Type: 
  Country: None (occurrence: None)
  Receive Date: 20100625
  Receipt Date: 20100616
  Transmission Date: 20101027
  Serious: Yes (Hospitalization)
  Sender: FDA-Public Use
  Company Number: FR-JNJFOC-20100605694

PATIENT
  Age: 21 Year
  Sex: Male

DRUGS (6)
  1. REMICADE [Suspect]
     Indication: CROHN'S DISEASE
     Dosage: REINTRODUCED WEEK 0, 2, 6, AND EVERY 8 WEEKS.
     Route: 042
  2. REMICADE [Suspect]
     Route: 042
  3. REMICADE [Suspect]
     Route: 042
  4. REMICADE [Suspect]
     Dosage: 2ND INFUSION AFTER REINTRODUCTION
     Route: 042
  5. REMICADE [Suspect]
     Route: 042
  6. SOLUPRED [Concomitant]
     Route: 042

REACTIONS (8)
  - DRUG INTOLERANCE [None]
  - DYSPNOEA [None]
  - HOT FLUSH [None]
  - HYPOTENSION [None]
  - INFUSION RELATED REACTION [None]
  - MALAISE [None]
  - SHOCK [None]
  - TACHYCARDIA [None]
